FAERS Safety Report 8190908-6 (Version None)
Quarter: 2012Q1

REPORT INFORMATION
  Report Type: 
  Country: None (occurrence: None)
  Receive Date: 20120221
  Receipt Date: 20111129
  Transmission Date: 20120608
  Serious: No
  Sender: FDA-Public Use
  Company Number: 1000025786

PATIENT
  Age: 70 Year
  Sex: Female

DRUGS (6)
  1. REQUIP (ROPINIROLE HYDROCHLORIDE) 9ROPINIROLE HYDROCHLORIDE) [Concomitant]
  2. LIPITOR [Concomitant]
  3. VIIBRYD [Suspect]
     Indication: DEPRESSION
     Dosage: 10 MG 910 MG, 1 IN 1 D), ORAL
     Route: 048
     Dates: start: 20111117, end: 20111123
  4. MULTIVITAMINS (MULTIVITAMINS) (MULTIVITAMINS) [Concomitant]
  5. ASPIRIN [Concomitant]
  6. SINEMET [Concomitant]

REACTIONS (1)
  - OEDEMA PERIPHERAL [None]
